FAERS Safety Report 6444321-X (Version None)
Quarter: 2009Q4

REPORT INFORMATION
  Report Type: 
  Country: None (occurrence: None)
  Receive Date: 20091118
  Receipt Date: 20091111
  Transmission Date: 20100525
  Serious: Yes (Hospitalization)
  Sender: FDA-Public Use
  Company Number: KR-ELI_LILLY_AND_COMPANY-KR200910007428

PATIENT
  Age: 61 Year
  Sex: Female

DRUGS (10)
  1. HUMALOG MIX 75/25 [Suspect]
     Indication: DIABETES MELLITUS
     Dosage: 25 U, 2/D
     Route: 058
     Dates: start: 20091016, end: 20091001
  2. HUMALOG MIX 75/25 [Suspect]
     Dosage: 35 U, 2/D
     Route: 058
     Dates: start: 20091023, end: 20091001
  3. HUMALOG MIX 75/25 [Suspect]
     Dosage: 39 U, IN MORNING
     Route: 058
     Dates: start: 20091025, end: 20091025
  4. HUMALOG MIX 75/25 [Suspect]
     Dosage: 25 U, DAILY (1/D)
     Route: 058
     Dates: start: 20091028
  5. HUMALOG MIX 75/25 [Suspect]
     Dosage: 22U IN THE MORNING, 12U IN THE EVENING
     Route: 065
     Dates: start: 20091104, end: 20091110
  6. HUMALOG MIX 75/25 [Suspect]
     Dosage: 34 U, 24 U IN THE MORNING 8 U IN THE EVENING
     Dates: start: 20091111
  7. HUMULIN R [Suspect]
     Indication: DIABETES MELLITUS
     Dosage: UNK, UNKNOWN
     Route: 065
  8. HUMULIN R [Suspect]
     Dosage: 30 U, IN EVENING
     Route: 065
     Dates: start: 20091025
  9. HUMULIN N [Suspect]
     Indication: DIABETES MELLITUS
     Dosage: UNK, UNKNOWN
     Route: 065
     Dates: start: 20091025
  10. LANTUS [Concomitant]
     Indication: DIABETES MELLITUS
     Dosage: UNK, UNKNOWN
     Route: 065

REACTIONS (4)
  - BLOOD GLUCOSE ABNORMAL [None]
  - BLOOD GLUCOSE INCREASED [None]
  - COMA [None]
  - HYPOGLYCAEMIA [None]
